FAERS Safety Report 9421419 (Version 4)
Quarter: 2013Q4

REPORT INFORMATION
  Report Type: Report from Study
  Country: US (occurrence: US)
  Receive Date: 20130725
  Receipt Date: 20131016
  Transmission Date: 20140711
  Serious: Yes (Other)
  Sender: FDA-Public Use
  Company Number: US-JNJFOC-20130711401

PATIENT
  Age: 59 Year
  Sex: Female
  Weight: 88.45 kg

DRUGS (12)
  1. INVOKANA [Suspect]
     Indication: DIABETES MELLITUS
     Route: 048
     Dates: start: 201306, end: 20130718
  2. BENADRYL [Suspect]
     Indication: PRODUCT USED FOR UNKNOWN INDICATION
     Route: 048
     Dates: start: 20130714
  3. METOPROLOL SUCCINATE EXTENDED RELEASE [Concomitant]
     Indication: HEART RATE
     Route: 048
  4. METOPROLOL SUCCINATE EXTENDED RELEASE [Concomitant]
     Indication: BLOOD PRESSURE
     Route: 048
  5. LOSARTAN POTASSIUM [Concomitant]
     Indication: SINGLE FUNCTIONAL KIDNEY
     Route: 048
  6. LOSARTAN POTASSIUM [Concomitant]
     Indication: BLOOD PRESSURE
     Route: 048
  7. EFFEXOR XR [Concomitant]
     Indication: ANXIETY
     Route: 048
  8. ASPIRIN [Concomitant]
     Indication: PROPHYLAXIS
     Route: 048
  9. FISH OIL [Concomitant]
     Indication: BLOOD CHOLESTEROL
     Route: 048
  10. VITAMIN D [Concomitant]
     Indication: VITAMIN D DEFICIENCY
     Route: 048
  11. ANTI-ITCH CREAM [Concomitant]
     Indication: PRURITUS
     Route: 061
     Dates: start: 201307
  12. MULTIVITAMINS [Concomitant]
     Route: 048

REACTIONS (9)
  - Hypersensitivity [Recovered/Resolved]
  - Rash [Recovered/Resolved]
  - Pyrexia [Recovered/Resolved]
  - Chills [Recovered/Resolved]
  - Urticaria [Recovered/Resolved]
  - Pruritus [Recovered/Resolved]
  - Insomnia [Recovering/Resolving]
  - Urinary tract infection [Recovering/Resolving]
  - Burning sensation [Recovered/Resolved]
